FAERS Safety Report 4459294-9 (Version None)
Quarter: 2004Q3

REPORT INFORMATION
  Report Type: 
  Country: None (occurrence: None)
  Receive Date: 20040927
  Receipt Date: 20040917
  Transmission Date: 20050211
  Serious: Yes (Hospitalization)
  Sender: FDA-Public Use
  Company Number: PHNU2004DE03270

PATIENT
  Age: 42 Year
  Sex: Male

DRUGS (5)
  1. CLOZARIL [Suspect]
     Indication: MEDICATION ERROR
     Dosage: 225 MG/DAY
     Route: 048
     Dates: start: 20040917, end: 20040917
  2. ORFIRIL ^DESITIN^ [Concomitant]
     Dosage: UNKNOWN
     Route: 048
     Dates: start: 20040917, end: 20040917
  3. AKINETON                                /AUS/ [Concomitant]
     Dosage: UNKNOWN
     Route: 065
  4. ABILIFY [Concomitant]
     Dosage: UNKNOWN
     Route: 065
  5. SOLIAN [Concomitant]
     Dosage: UNKNOWN
     Route: 065

REACTIONS (2)
  - MEDICATION ERROR [None]
  - SOMNOLENCE [None]
